FAERS Safety Report 14860187 (Version 1)
Quarter: 2018Q2

REPORT INFORMATION
  Report Type: Spontaneous
  Country: US (occurrence: US)
  Receive Date: 20180420
  Receipt Date: 20180420
  Transmission Date: 20180711
  Serious: Yes (Other)
  Sender: FDA-Public Use
  Company Number: None

PATIENT
  Age: 54 Year
  Sex: Female
  Weight: 69.75 kg

DRUGS (2)
  1. ATORVASTATIN [Suspect]
     Active Substance: ATORVASTATIN
     Dates: start: 20170609, end: 20180420
  2. ACYCLOVIR. [Concomitant]
     Active Substance: ACYCLOVIR
     Dates: start: 20171113, end: 20171213

REACTIONS (3)
  - Hysterectomy [None]
  - Leiomyosarcoma [None]
  - Endometrial stromal sarcoma [None]

NARRATIVE: CASE EVENT DATE: 20170609
